FAERS Safety Report 10573452 (Version 3)
Quarter: 2014Q4

REPORT INFORMATION
  Report Type: Spontaneous
  Country: FR (occurrence: FR)
  Receive Date: 20141110
  Receipt Date: 20141224
  Transmission Date: 20150529
  Serious: Yes (Life-Threatening, Hospitalization)
  Sender: FDA-Public Use
  Company Number: FR-SA-2014SA149778

PATIENT
  Age: 85 Year
  Sex: Female
  Weight: 74 kg

DRUGS (19)
  1. DOTAREM [Suspect]
     Active Substance: GADOTERATE MEGLUMINE
     Route: 065
     Dates: start: 20140717, end: 20140717
  2. AVLOCARDYL [Concomitant]
     Active Substance: PROPRANOLOL HYDROCHLORIDE
     Route: 048
     Dates: start: 20130221
  3. ZOPICLONE [Concomitant]
     Active Substance: ZOPICLONE
     Route: 048
  4. PARACETAMOL [Concomitant]
     Active Substance: ACETAMINOPHEN
     Route: 048
  5. IOMERON [Suspect]
     Active Substance: IOMEPROL
     Dosage: 350 MG IODINE /ML
     Route: 042
     Dates: start: 20140715, end: 20140715
  6. VITAMIN B6 [Concomitant]
     Active Substance: PYRIDOXINE HYDROCHLORIDE
     Dates: start: 20140718, end: 20140718
  7. HUMALOG [Concomitant]
     Active Substance: INSULIN LISPRO
  8. LASILIX [Concomitant]
     Active Substance: FUROSEMIDE
     Route: 048
     Dates: start: 20130226
  9. LANTUS [Concomitant]
     Active Substance: INSULIN GLARGINE
     Route: 042
  10. NEXIUM [Concomitant]
     Active Substance: ESOMEPRAZOLE MAGNESIUM
     Route: 048
     Dates: start: 20131221
  11. TIAPRIDAL [Concomitant]
     Active Substance: TIAPRIDE HYDROCHLORIDE
     Route: 048
     Dates: start: 20140718, end: 20140718
  12. LOVENOX [Suspect]
     Active Substance: ENOXAPARIN SODIUM
     Indication: PULMONARY EMBOLISM
     Dosage: DAILY DOSE: 0.6 UNITS NOT SPECIFIED?STRENGTH: 0.6 ML
     Route: 042
     Dates: start: 20140715, end: 20140718
  13. KARDEGIC [Concomitant]
     Active Substance: ASPIRIN LYSINE
     Route: 042
     Dates: start: 20131221
  14. PAROXETINE [Concomitant]
     Active Substance: PAROXETINE\PAROXETINE HYDROCHLORIDE
     Dates: start: 20130221
  15. AMLOR [Concomitant]
     Active Substance: AMLODIPINE BESYLATE
     Dates: start: 20140713
  16. SIMVASTATIN. [Concomitant]
     Active Substance: SIMVASTATIN
     Route: 048
     Dates: start: 20130202
  17. VITAMIN B1 [Concomitant]
     Active Substance: THIAMINE HYDROCHLORIDE
     Dates: start: 20140718, end: 20140718
  18. MIMPARA [Concomitant]
     Active Substance: CINACALCET HYDROCHLORIDE
     Route: 048
  19. ALLOPURINOL. [Concomitant]
     Active Substance: ALLOPURINOL
     Route: 048
     Dates: start: 20140718, end: 20140718

REACTIONS (2)
  - Acute kidney injury [Recovering/Resolving]
  - Condition aggravated [Recovered/Resolved]

NARRATIVE: CASE EVENT DATE: 20140717
